FAERS Safety Report 23803075 (Version 1)
Quarter: 2024Q2

REPORT INFORMATION
  Report Type: Spontaneous
  Country: US (occurrence: None)
  Receive Date: 20240430
  Receipt Date: 20240430
  Transmission Date: 20240716
  Serious: Yes (Other)
  Sender: FDA-Public Use
  Company Number: None

PATIENT
  Age: 52 Year
  Sex: Male
  Weight: 121.5 kg

DRUGS (8)
  1. AMITRIPTYLINE [Suspect]
     Active Substance: AMITRIPTYLINE
     Indication: Neuralgia
     Dosage: OTHER QUANTITY : 1 TABLET(S)?FREQUENCY : AT BEDTIME?
     Route: 048
     Dates: start: 20240415, end: 20240426
  2. DICLOFENAC [Concomitant]
     Active Substance: DICLOFENAC
  3. ADAIR [Concomitant]
  4. ZANAFLEX [Concomitant]
     Active Substance: TIZANIDINE HYDROCHLORIDE
  5. CELEXA [Concomitant]
     Active Substance: CITALOPRAM HYDROBROMIDE
  6. TRAZODONE [Concomitant]
     Active Substance: TRAZODONE HYDROCHLORIDE
  7. VITAMIN D [Concomitant]
     Active Substance: VITAMIN D NOS
  8. MELATONIN [Concomitant]
     Active Substance: MELATONIN

REACTIONS (3)
  - Agitation [None]
  - Aggression [None]
  - Feeling abnormal [None]

NARRATIVE: CASE EVENT DATE: 20240426
